FAERS Safety Report 4490356-6 (Version None)
Quarter: 2004Q3

REPORT INFORMATION
  Report Type: 
  Country: None (occurrence: None)
  Receive Date: 20040921
  Receipt Date: 20031216
  Transmission Date: 20050211
  Serious: Yes (Life-Threatening, Hospitalization)
  Sender: FDA-Public Use
  Company Number: 163-20785-03120421

PATIENT
  Age: 76 Year
  Sex: Male

DRUGS (9)
  1. THALOMID [Suspect]
     Indication: HEPATIC NEOPLASM MALIGNANT
     Dosage: 200 MG, DAILY, ORAL
     Route: 048
     Dates: start: 20031009, end: 20031209
  2. EPIRUBICIN [Suspect]
     Indication: HEPATIC NEOPLASM MALIGNANT
     Dosage: 20 MG/M2, WEEKLY, INTRAVENOUS
     Route: 042
     Dates: start: 20031009, end: 20031204
  3. DILTIAZEM [Concomitant]
  4. COUMADIN [Concomitant]
  5. DIGOXIN [Concomitant]
  6. LOPRESSOR [Concomitant]
  7. ALDACTONE [Concomitant]
  8. VIOXX [Concomitant]
  9. ALTACE [Concomitant]

REACTIONS (8)
  - ATRIAL FLUTTER [None]
  - ATRIOVENTRICULAR BLOCK COMPLETE [None]
  - BLOOD CREATININE INCREASED [None]
  - BLOOD POTASSIUM INCREASED [None]
  - BRADYCARDIA [None]
  - FATIGUE [None]
  - LETHARGY [None]
  - RENAL FAILURE [None]
